FAERS Safety Report 11265067 (Version 1)
Quarter: 2015Q3

REPORT INFORMATION
  Report Type: Spontaneous
  Country: US (occurrence: US)
  Receive Date: 20150713
  Receipt Date: 20150713
  Transmission Date: 20151125
  Serious: No
  Sender: FDA-Public Use
  Company Number: US-ELI_LILLY_AND_COMPANY-US201507002723

PATIENT
  Sex: Female

DRUGS (3)
  1. HUMULIN 70/30 [Suspect]
     Active Substance: INSULIN HUMAN
     Indication: TYPE 2 DIABETES MELLITUS
     Dosage: 110 U, BID
     Route: 065
     Dates: start: 2009
  2. ASPIRIN                            /00002701/ [Concomitant]
     Active Substance: ASPIRIN
     Dosage: UNK, QD
  3. REMERON [Concomitant]
     Active Substance: MIRTAZAPINE
     Dosage: 45 MG, EACH EVENING

REACTIONS (7)
  - Cardiac disorder [Unknown]
  - Insulin resistance [Unknown]
  - Blood glucose increased [Unknown]
  - Bipolar disorder [Unknown]
  - Pain [Unknown]
  - Neuropathy peripheral [Unknown]
  - Glycosylated haemoglobin increased [Unknown]
